FAERS Safety Report 7372446-3 (Version None)
Quarter: 2011Q1

REPORT INFORMATION
  Report Type: 
  Country: None (occurrence: None)
  Receive Date: 20110324
  Receipt Date: 20110314
  Transmission Date: 20110831
  Serious: Yes (Hospitalization)
  Sender: FDA-Public Use
  Company Number: IN-SANOFI-AVENTIS-2011SA015164

PATIENT
  Age: 44 Year
  Sex: Female
  Weight: 68.3 kg

DRUGS (2)
  1. SOLOSTAR [Suspect]
  2. LANTUS [Suspect]
     Indication: TYPE 2 DIABETES MELLITUS
     Dates: start: 20101228

REACTIONS (1)
  - HEMIPARESIS [None]
